FAERS Safety Report 7645020-9 (Version None)
Quarter: 2011Q3

REPORT INFORMATION
  Report Type: 
  Country: None (occurrence: None)
  Receive Date: 20110729
  Receipt Date: 20110726
  Transmission Date: 20111222
  Serious: Yes (Other)
  Sender: FDA-Public Use
  Company Number: FR-GLAXOSMITHKLINE-B0703670A

PATIENT
  Sex: Female
  Weight: 61 kg

DRUGS (6)
  1. AUGMENTIN '125' [Suspect]
     Indication: INFLUENZA
     Route: 048
     Dates: start: 20110202, end: 20110210
  2. SOTALOL HCL [Concomitant]
  3. ASPIRIN [Concomitant]
  4. PIASCLEDINE [Concomitant]
  5. OROCAL VIT D3 [Concomitant]
  6. NON-STEROIDAL ANTI-INFLAMMATORY DRUG [Concomitant]

REACTIONS (8)
  - CHOLESTASIS [None]
  - NAUSEA [None]
  - HEPATITIS [None]
  - HEPATIC PAIN [None]
  - CHROMATURIA [None]
  - PRURITUS [None]
  - HEPATOCELLULAR INJURY [None]
  - JAUNDICE [None]
